FAERS Safety Report 5671299-9 (Version None)
Quarter: 2008Q1

REPORT INFORMATION
  Report Type: 
  Country: None (occurrence: None)
  Receive Date: 20080318
  Receipt Date: 20080314
  Transmission Date: 20080703
  Serious: Yes (Death)
  Sender: FDA-Public Use
  Company Number: US-BRISTOL-MYERS SQUIBB COMPANY-14098586

PATIENT
  Sex: Female

DRUGS (1)
  1. IXEMPRA [Suspect]
     Indication: BREAST CANCER
     Route: 042

REACTIONS (3)
  - ASTHENIA [None]
  - BREAST CANCER FEMALE [None]
  - MALIGNANT NEOPLASM PROGRESSION [None]
